FAERS Safety Report 9709672 (Version 2)
Quarter: 2014Q1

REPORT INFORMATION
  Report Type: Spontaneous
  Country: GB (occurrence: GB)
  Receive Date: 20131126
  Receipt Date: 20140225
  Transmission Date: 20141002
  Serious: Yes (Hospitalization, Other)
  Sender: FDA-Public Use
  Company Number: PHFR2013GB006596

PATIENT
  Sex: Male

DRUGS (5)
  1. CLOZARIL [Suspect]
     Indication: SCHIZOPHRENIA
     Dosage: UNK
     Route: 048
     Dates: start: 20010701
  2. OLANZAPINE [Concomitant]
     Dosage: 10 MG, DAILY
     Route: 048
     Dates: start: 20131202
  3. VALPROATE SODIUM [Concomitant]
     Dosage: 600 MG, QD
     Route: 048
  4. GABAPENTINE [Concomitant]
     Dosage: 100 MG, TID
     Route: 048
  5. LAMOTRIGINE [Concomitant]
     Dosage: 50 MG, DAILY
     Route: 048

REACTIONS (5)
  - Aortic aneurysm [Recovered/Resolved]
  - Renal impairment [Unknown]
  - Lower respiratory tract infection [Unknown]
  - Confusion postoperative [Unknown]
  - Psychotic disorder [Unknown]
